FAERS Safety Report 5390837-7 (Version None)
Quarter: 2007Q3

REPORT INFORMATION
  Report Type: 
  Country: None (occurrence: None)
  Receive Date: 20070713
  Receipt Date: 20070702
  Transmission Date: 20080115
  Serious: Yes (Other)
  Sender: FDA-Public Use
  Company Number: TUK2007A00063

PATIENT
  Sex: Female

DRUGS (2)
  1. ACTOS [Suspect]
     Dosage: 30 MG
     Dates: start: 20070601
  2. GLICLAZIDE [Concomitant]

REACTIONS (1)
  - VISUAL FIELD DEFECT [None]
